FAERS Safety Report 7967272-8 (Version None)
Quarter: 2011Q4

REPORT INFORMATION
  Report Type: 
  Country: None (occurrence: None)
  Receive Date: 20111206
  Receipt Date: 20111111
  Transmission Date: 20120403
  Serious: Yes (Other)
  Sender: FDA-Public Use
  Company Number: AUR-APL-2011-05979

PATIENT
  Age: 16 Year
  Sex: Female

DRUGS (1)
  1. CEFAZOLIN [Suspect]
     Indication: PROPHYLAXIS
     Dosage: 1GM SINGLE,INTRAVENOUS
     Route: 042

REACTIONS (7)
  - ENDOMETRITIS DECIDUAL [None]
  - PERITONEAL FLUID ANALYSIS ABNORMAL [None]
  - STREPTOCOCCUS TEST POSITIVE [None]
  - VASCULITIS [None]
  - POST PROCEDURAL DISCHARGE [None]
  - FUNISITIS [None]
  - CHORIOAMNIONITIS [None]
